FAERS Safety Report 5202568-4 (Version None)
Quarter: 2006Q4

REPORT INFORMATION
  Report Type: 
  Country: None (occurrence: None)
  Receive Date: 20061018
  Receipt Date: 20041026
  Transmission Date: 20070319
  Serious: Yes (Other)
  Sender: FDA-Public Use
  Company Number: PHEH2004US10919

PATIENT
  Age: 62 Year
  Sex: Male

DRUGS (12)
  1. ZOMETA [Suspect]
     Indication: MULTIPLE MYELOMA
     Dosage: 4MG Q4W, UNK
     Dates: start: 20040301
  2. THALIDOMIDE [Concomitant]
  3. DEXMETHASONE (DEXAMETHASONE) [Concomitant]
  4. PROCRIT [Concomitant]
  5. AMIODARONE HCL [Concomitant]
  6. LASIX (FUROSEMIDE, FUROSEMIDE SODIUM) [Concomitant]
  7. ZAROXOLYN [Concomitant]
  8. POTASSIUM (POTASSIUM) [Concomitant]
  9. CARDIAZEM (DILTIAZEM) [Concomitant]
  10. TOPROL-XL [Concomitant]
  11. LISINOPRIL [Concomitant]
  12. COUMADIN [Concomitant]

REACTIONS (2)
  - ANAEMIA [None]
  - PACKED RED BLOOD CELL TRANSFUSION [None]
